FAERS Safety Report 5869760-7 (Version None)
Quarter: 2008Q3

REPORT INFORMATION
  Report Type: 
  Country: None (occurrence: None)
  Receive Date: 20080904
  Receipt Date: 20080828
  Transmission Date: 20090109
  Serious: Yes (Other)
  Sender: FDA-Public Use
  Company Number: GB-ABBOTT-08P-167-0473078-00

PATIENT
  Age: 61 Year
  Sex: Female
  Weight: 36 kg

DRUGS (4)
  1. REDUCTIL 10MG [Suspect]
     Indication: OBESITY
     Dates: start: 20080630, end: 20080814
  2. ACETAMINOPHEN W/ CODEINE [Concomitant]
     Indication: OSTEOARTHRITIS
     Dosage: 1-2, FOUR TIMES A DAY
     Dates: start: 20060101
  3. SIMVASTATIN [Concomitant]
     Indication: HYPERCHOLESTEROLAEMIA
  4. PROPRANOLOL [Concomitant]
     Indication: TREMOR
     Dates: start: 20060101

REACTIONS (1)
  - ANGLE CLOSURE GLAUCOMA [None]
